FAERS Safety Report 14566423 (Version 1)
Quarter: 2018Q1

REPORT INFORMATION
  Report Type: Spontaneous
  Country: US (occurrence: US)
  Receive Date: 20180222
  Receipt Date: 20180222
  Transmission Date: 20180509
  Serious: No
  Sender: FDA-Public Use
  Company Number: None

PATIENT
  Age: 48 Year
  Sex: Male

DRUGS (2)
  1. MOMETASONE NASAL 50MCG [Suspect]
     Active Substance: MOMETASONE
     Indication: RHINITIS ALLERGIC
     Dosage: DOSE - 2 SPRAYS?ROUTE - INTRANASAL
     Dates: start: 20171113, end: 20171214
  2. FLUTICASONE NASAL 50MCG [Suspect]
     Active Substance: FLUTICASONE
     Indication: NASAL POLYPS
     Dosage: DOSE - 2 SPRAYS?ROUTE - INTRANASAL
     Dates: start: 20180103, end: 20180131

REACTIONS (2)
  - Drug effect decreased [None]
  - Product substitution issue [None]
